FAERS Safety Report 8146823-7 (Version None)
Quarter: 2012Q1

REPORT INFORMATION
  Report Type: 
  Country: None (occurrence: None)
  Receive Date: 20120217
  Receipt Date: 20120213
  Transmission Date: 20120608
  Serious: Yes (Hospitalization, Other)
  Sender: FDA-Public Use
  Company Number: VE-ABBOTT-11P-178-0867394-00

PATIENT
  Sex: Male

DRUGS (2)
  1. HUMIRA [Suspect]
     Indication: PSORIASIS
     Route: 058
     Dates: start: 20080904, end: 20110930
  2. HUMIRA [Suspect]
     Dates: start: 20111025

REACTIONS (5)
  - LIGAMENT DISORDER [None]
  - ROAD TRAFFIC ACCIDENT [None]
  - MENISCUS OPERATION [None]
  - LOWER LIMB FRACTURE [None]
  - NERVE INJURY [None]
